FAERS Safety Report 10575303 (Version 2)
Quarter: 2015Q1

REPORT INFORMATION
  Report Type: Spontaneous
  Country: JP (occurrence: None)
  Receive Date: 20141107
  Receipt Date: 20150122
  Transmission Date: 20150720
  Serious: Yes (Hospitalization, Other)
  Sender: FDA-Public Use
  Company Number: JP-20140338

PATIENT
  Age: 79 Year
  Sex: Male

DRUGS (2)
  1. EPIRUBICIN (EPIRUBICIN) (EPIRUBICIN) [Concomitant]
     Active Substance: EPIRUBICIN
  2. LIPIODOL ULTRA FLUID [Suspect]
     Active Substance: ETHIODIZED OIL
     Indication: BALLOON-OCCLUDED RETROGRADE TRANSVENOUS OBLITERATION
     Dosage: 6 ML (6 ML, 1 IN 1 D), INTRA-ARTERIAL
     Route: 013
     Dates: start: 20120828, end: 20120828

REACTIONS (3)
  - Thrombocytopenia [None]
  - Aspartate aminotransferase increased [None]
  - Alanine aminotransferase increased [None]

NARRATIVE: CASE EVENT DATE: 20120829
